FAERS Safety Report 19232495 (Version 2)
Quarter: 2021Q2

REPORT INFORMATION
  Report Type: Spontaneous
  Country: US (occurrence: US)
  Receive Date: 20210507
  Receipt Date: 20210517
  Transmission Date: 20210717
  Serious: Yes (Other)
  Sender: FDA-Public Use
  Company Number: US-RECKITT BENCKISER HEALTHCARE INT LIMITED-RB-87183-2021

PATIENT
  Age: 30 Year
  Sex: Female

DRUGS (10)
  1. XYZAL [Concomitant]
     Active Substance: LEVOCETIRIZINE DIHYDROCHLORIDE
     Indication: HYPERSENSITIVITY
     Dosage: UNK
     Route: 065
  2. DELSYM (DEXTROMETHORPHAN) [Suspect]
     Active Substance: DEXTROMETHORPHAN
     Indication: PRODUCT USED FOR UNKNOWN INDICATION
     Dosage: UNK, TOOK A SIP FROM THE BOTTLE
     Route: 048
     Dates: start: 20210504
  3. SPIRONOLACTONE. [Concomitant]
     Active Substance: SPIRONOLACTONE
     Indication: PRODUCT USED FOR UNKNOWN INDICATION
     Dosage: UNK
     Route: 065
  4. VICKS DAYQUIL [Suspect]
     Active Substance: DEXTROMETHORPHAN HYDROBROMIDE\GUAIFENESIN
     Indication: PRODUCT USED FOR UNKNOWN INDICATION
     Dosage: 2 DOSAGE FORM ALTERNATING WITH MUCINEX SINUS
     Route: 065
     Dates: start: 20210502
  5. MELOXICAM. [Concomitant]
     Active Substance: MELOXICAM
     Indication: PRODUCT USED FOR UNKNOWN INDICATION
     Dosage: UNK
     Route: 065
  6. MAXIMUM STRENGTH MUCINEX SINUS?MAX PRESSURE, PAIN AND COUGH [Suspect]
     Active Substance: ACETAMINOPHEN\DEXTROMETHORPHAN HYDROBROMIDE\GUAIFENESIN\PHENYLEPHRINE HYDROCHLORIDE
     Indication: PRODUCT USED FOR UNKNOWN INDICATION
     Dosage: 2 DOSAGE FORM EVERY FOUR HOURS
     Route: 065
     Dates: start: 20210502, end: 20210504
  7. VICKS NYQUIL [Suspect]
     Active Substance: ACETAMINOPHEN\DEXTROMETHORPHAN HYDROBROMIDE\DOXYLAMINE SUCCINATE
     Indication: PRODUCT USED FOR UNKNOWN INDICATION
     Dosage: 2 DOSAGE FORM AT BEDTIME
     Route: 065
     Dates: start: 20210502
  8. COSENTYX [Concomitant]
     Active Substance: SECUKINUMAB
     Indication: PRODUCT USED FOR UNKNOWN INDICATION
     Dosage: UNK
     Route: 065
  9. PROPANOLOL [PROPRANOLOL] [Concomitant]
     Active Substance: PROPRANOLOL HYDROCHLORIDE
     Indication: PRODUCT USED FOR UNKNOWN INDICATION
     Dosage: UNK
     Route: 065
  10. CYMBALTA [Concomitant]
     Active Substance: DULOXETINE HYDROCHLORIDE
     Indication: PRODUCT USED FOR UNKNOWN INDICATION
     Dosage: UNK
     Route: 065

REACTIONS (9)
  - Product administered to patient of inappropriate age [Recovering/Resolving]
  - Hallucination [Recovering/Resolving]
  - Diplopia [Recovering/Resolving]
  - Feeling abnormal [Recovering/Resolving]
  - Fatigue [Recovering/Resolving]
  - Wrong technique in product usage process [Recovering/Resolving]
  - Hypoaesthesia [Recovering/Resolving]
  - Dizziness [Recovering/Resolving]
  - Somnolence [Not Recovered/Not Resolved]

NARRATIVE: CASE EVENT DATE: 202105
